FAERS Safety Report 24231296 (Version 1)
Quarter: 2024Q3

REPORT INFORMATION
  Report Type: Report from Study
  Country: CA (occurrence: CA)
  Receive Date: 20240821
  Receipt Date: 20240821
  Transmission Date: 20241017
  Serious: Yes (Hospitalization)
  Sender: BIOCON
  Company Number: CA-BIOCON BIOLOGICS LIMITED-BBL2024006044

PATIENT

DRUGS (2)
  1. HULIO [Suspect]
     Active Substance: ADALIMUMAB-FKJP
     Indication: Psoriatic arthropathy
     Dosage: 40 MILLIGRAM, QWEEK; 1 EVERY 1 WEEK.
     Route: 058
  2. HULIO [Suspect]
     Active Substance: ADALIMUMAB-FKJP
     Dosage: 1 EVERY 1 WEEKS
     Route: 058

REACTIONS (5)
  - Infection [Unknown]
  - Product dose omission issue [Unknown]
  - Off label use [Unknown]
  - Product packaging quantity issue [Unknown]
  - Device issue [Unknown]
